FAERS Safety Report 10570410 (Version 1)
Quarter: 2014Q4

REPORT INFORMATION
  Report Type: Report from Study
  Country: US (occurrence: US)
  Receive Date: 20141107
  Receipt Date: 20141107
  Transmission Date: 20150529
  Serious: Yes (Hospitalization, Disabling)
  Sender: FDA-Public Use
  Company Number: US-CELGENE-USA-2014104535

PATIENT
  Age: 82 Year
  Sex: Female
  Weight: 93.6 kg

DRUGS (2)
  1. REVLIMID [Suspect]
     Active Substance: LENALIDOMIDE
     Route: 048
     Dates: start: 20141009, end: 20141021
  2. REVLIMID [Suspect]
     Active Substance: LENALIDOMIDE
     Indication: CHRONIC LYMPHOCYTIC LEUKAEMIA
     Route: 048
     Dates: start: 20100114

REACTIONS (4)
  - Headache [Unknown]
  - Atrioventricular block second degree [Not Recovered/Not Resolved]
  - Fatigue [Unknown]
  - Dizziness [Unknown]

NARRATIVE: CASE EVENT DATE: 20141015
